FAERS Safety Report 13219667 (Version 1)
Quarter: 2017Q1

REPORT INFORMATION
  Report Type: Spontaneous
  Country: RO (occurrence: RO)
  Receive Date: 20170210
  Receipt Date: 20170210
  Transmission Date: 20170428
  Serious: Yes (Death)
  Sender: FDA-Public Use
  Company Number: RO-ACTELION-A-CH2017-149250

PATIENT
  Age: 74 Year
  Sex: Female

DRUGS (4)
  1. ASPENTER [Concomitant]
     Active Substance: ASPIRIN
  2. ALPHA D3 [Concomitant]
  3. TERTENSIF [Concomitant]
     Active Substance: INDAPAMIDE
  4. TRACLEER [Suspect]
     Active Substance: BOSENTAN
     Indication: PRODUCT USED FOR UNKNOWN INDICATION
     Dosage: UNK
     Route: 048
     Dates: start: 201502

REACTIONS (1)
  - Sudden death [Fatal]
